FAERS Safety Report 4746155-0 (Version None)
Quarter: 2005Q3

REPORT INFORMATION
  Report Type: 
  Country: None (occurrence: None)
  Receive Date: 20050816
  Receipt Date: 20050801
  Transmission Date: 20060218
  Serious: Yes (Hospitalization)
  Sender: FDA-Public Use
  Company Number: 200071

PATIENT
  Sex: Male

DRUGS (1)
  1. AVONEX [Suspect]
     Indication: MULTIPLE SCLEROSIS
     Dosage: 30 UG;QW; IM
     Route: 030
     Dates: start: 20040511, end: 20040517

REACTIONS (10)
  - ALANINE AMINOTRANSFERASE INCREASED [None]
  - ASPARTATE AMINOTRANSFERASE INCREASED [None]
  - CYTOMEGALOVIRUS VIRAEMIA [None]
  - HEADACHE [None]
  - LYMPHADENOPATHY [None]
  - MYALGIA [None]
  - NECK PAIN [None]
  - NIGHT SWEATS [None]
  - PYREXIA [None]
  - SINUS DISORDER [None]
